FAERS Safety Report 26028023 (Version 2)
Quarter: 2025Q4

REPORT INFORMATION
  Report Type: Report from Study
  Country: EU (occurrence: EU)
  Receive Date: 20251111
  Receipt Date: 20251221
  Transmission Date: 20260118
  Serious: Yes (Other)
  Sender: MYLAN
  Company Number: EU-MYLANLABS-2025M1095086

PATIENT
  Age: 48 Year
  Sex: Female

DRUGS (3)
  1. CLOZAPINE [Suspect]
     Active Substance: CLOZAPINE
     Indication: Schizophrenia
     Dosage: 400 MILLIGRAM, QD
     Dates: start: 20090710
  2. OLANZAPINE [Concomitant]
     Active Substance: OLANZAPINE
     Dosage: 1 DOSAGE FORM, BID
     Dates: start: 202301
  3. OXAZEPAM [Concomitant]
     Active Substance: OXAZEPAM
     Dosage: 1 DOSAGE FORM, BID
     Dates: start: 202410

REACTIONS (5)
  - Neutropenia [Recovering/Resolving]
  - Mean cell volume increased [Not Recovered/Not Resolved]
  - White blood cell count decreased [Not Recovered/Not Resolved]
  - Platelet count decreased [Not Recovered/Not Resolved]
  - Off label use [Not Recovered/Not Resolved]

NARRATIVE: CASE EVENT DATE: 20251104
